FAERS Safety Report 10475886 (Version 1)
Quarter: 2014Q3

REPORT INFORMATION
  Report Type: Spontaneous
  Country: DE (occurrence: DE)
  Receive Date: 20140925
  Receipt Date: 20140925
  Transmission Date: 20150326
  Serious: Yes (Hospitalization)
  Sender: FDA-Public Use
  Company Number: DE-MYLANLABS-2014M1005263

PATIENT

DRUGS (5)
  1. OXYBUTYNIN [Interacting]
     Active Substance: OXYBUTYNIN
     Dosage: 5 MG, AM
     Route: 048
  2. RAMIPRIL. [Suspect]
     Active Substance: RAMIPRIL
     Dosage: 2.5 MG, AM
     Route: 048
     Dates: start: 2008
  3. ANASTROZOLE. [Interacting]
     Active Substance: ANASTROZOLE
     Indication: BREAST CANCER
     Dosage: 1 MG, AM
     Route: 048
     Dates: start: 2006
  4. MEGA GREEN TEA EXTRACT [Interacting]
     Active Substance: DIETARY SUPPLEMENT
     Dosage: 725 MG, QD
     Route: 048
     Dates: start: 20101221
  5. COLECALCIFEROL [Concomitant]
     Active Substance: CHOLECALCIFEROL
     Route: 048
     Dates: start: 201002

REACTIONS (2)
  - Drug interaction [Recovered/Resolved]
  - Hepatitis acute [Recovered/Resolved]
